FAERS Safety Report 4462603-8 (Version None)
Quarter: 2004Q3

REPORT INFORMATION
  Report Type: 
  Country: None (occurrence: None)
  Receive Date: 20040928
  Receipt Date: 20040910
  Transmission Date: 20050211
  Serious: Yes (Death, Life-Threatening, Hospitalization, Other)
  Sender: FDA-Public Use
  Company Number: 2004066474

PATIENT
  Age: 82 Year
  Sex: Female

DRUGS (12)
  1. ALPRESS  (PRAZOSIN) [Suspect]
     Indication: ESSENTIAL HYPERTENSION
     Dosage: 2.5 MG (1 IN 1 D), ORAL
     Route: 048
     Dates: start: 20040515, end: 20040517
  2. AMLODIPINE [Suspect]
     Indication: ESSENTIAL HYPERTENSION
     Dosage: 5 MG (5 MG, 1 IN 1 D), ORAL
     Route: 048
  3. FUROSEMIDE [Suspect]
     Indication: RENAL FAILURE CHRONIC
     Dosage: 500 MG (1 IN 1 D), INTRAVENOUS
     Route: 042
     Dates: start: 20040511, end: 20040526
  4. NICORANDIL (NICORANDIL) [Suspect]
     Indication: ILL-DEFINED DISORDER
     Dosage: 40 MG (20 MG, 1 IN 1 D), ORAL
     Route: 048
     Dates: start: 20040511, end: 20040527
  5. TERBUTALINE SULFATE [Concomitant]
  6. IPRATROPIUM BROMIDE [Concomitant]
  7. LORATADINE [Concomitant]
  8. ESOMEPRAZOLE MAGNESIUM (ESOMEPRAZOLE MAGNESIUM) [Concomitant]
  9. ACETYLSALICYLATE LYSINE (ACETYLSALICYLIC LYSINE) [Concomitant]
  10. INSULIN ISOPHANE, HUMAN BIOSYNTHETIC (INSULIN ISOPHANE, HUMAN BIOSYNTH [Concomitant]
  11. EPOETIN BETA (EPOETIN BETA) [Concomitant]
  12. POTASSIUM CHLORIDE [Concomitant]

REACTIONS (3)
  - FALL [None]
  - MULTI-ORGAN FAILURE [None]
  - SUBDURAL HAEMATOMA [None]
